FAERS Safety Report 6122425-9 (Version None)
Quarter: 2009Q1

REPORT INFORMATION
  Report Type: 
  Country: None (occurrence: None)
  Receive Date: 20090318
  Receipt Date: 20090121
  Transmission Date: 20090719
  Serious: No
  Sender: FDA-Public Use
  Company Number: US-ASTRAZENECA-2009UW02085

PATIENT
  Age: 17679 Day
  Sex: Female

DRUGS (2)
  1. SYMBICORT [Suspect]
     Route: 055
     Dates: start: 20080121
  2. SEROQUEL [Suspect]
     Route: 048

REACTIONS (2)
  - ASTHMA [None]
  - NASOPHARYNGITIS [None]
